FAERS Safety Report 5819324-6 (Version None)
Quarter: 2008Q3

REPORT INFORMATION
  Report Type: 
  Country: None (occurrence: None)
  Receive Date: 20080723
  Receipt Date: 20080711
  Transmission Date: 20090109
  Serious: Yes (Congenital Anomaly)
  Sender: FDA-Public Use
  Company Number: US-MERCK-0807USA02966

PATIENT

DRUGS (2)
  1. SINGULAIR [Suspect]
     Route: 064
  2. ALLEGRA [Concomitant]
     Route: 064

REACTIONS (6)
  - CONGENITAL ANOMALY [None]
  - CYTOGENETIC ABNORMALITY [None]
  - FOETAL HEART RATE ABNORMAL [None]
  - FOETAL HEART RATE DECREASED [None]
  - MATERNAL DRUGS AFFECTING FOETUS [None]
  - ULTRASOUND ANTENATAL SCREEN ABNORMAL [None]
